FAERS Safety Report 11041235 (Version 1)
Quarter: 2015Q2

REPORT INFORMATION
  Report Type: Report from Study
  Country: ES (occurrence: ES)
  Receive Date: 20150416
  Receipt Date: 20150416
  Transmission Date: 20150821
  Serious: Yes (Other)
  Sender: FDA-Public Use
  Company Number: ES-ABBVIE-14P-144-1283281-00

PATIENT
  Age: 61 Year
  Sex: Female
  Weight: 75 kg

DRUGS (1)
  1. DUODOPA [Suspect]
     Active Substance: CARBIDOPA\LEVODOPA
     Indication: PARKINSON^S DISEASE
     Dosage: MD: 12.5 ML; CD 5.2 ML/HOUR; ED: 3.5 ML
     Route: 050
     Dates: start: 201312

REACTIONS (3)
  - Granuloma [Not Recovered/Not Resolved]
  - Goitre [Unknown]
  - Weight decreased [Unknown]

NARRATIVE: CASE EVENT DATE: 201312
